FAERS Safety Report 18171987 (Version 1)
Quarter: 2020Q3

REPORT INFORMATION
  Report Type: Spontaneous
  Country: NL (occurrence: NL)
  Receive Date: 20200820
  Receipt Date: 20200820
  Transmission Date: 20201103
  Serious: Yes (Other)
  Sender: FDA-Public Use
  Company Number: NL-AUROBINDO-AUR-APL-2020-039202

PATIENT
  Sex: Female

DRUGS (1)
  1. PAROXETINE. [Suspect]
     Active Substance: PAROXETINE
     Indication: PRODUCT USED FOR UNKNOWN INDICATION
     Dosage: 20 MILLIGRAM, ONCE A DAY
     Route: 064

REACTIONS (7)
  - Hypothermia [Unknown]
  - Selective eating disorder [Unknown]
  - Withdrawal syndrome [Unknown]
  - Electroencephalogram abnormal [Unknown]
  - Myoclonus [Unknown]
  - Toxicity to various agents [Unknown]
  - Foetal exposure during pregnancy [Unknown]
